FAERS Safety Report 14689493 (Version 4)
Quarter: 2018Q4

REPORT INFORMATION
  Report Type: Report from Study
  Country: FR (occurrence: FR)
  Receive Date: 20180328
  Receipt Date: 20181022
  Transmission Date: 20190204
  Serious: Yes (Hospitalization, Other)
  Sender: FDA-Public Use
  Company Number: FR-BRISTOL-MYERS SQUIBB COMPANY-BMS-2018-025225

PATIENT
  Age: 86 Year
  Sex: Male
  Weight: 78 kg

DRUGS (11)
  1. WARFARIN SODIUM. [Suspect]
     Active Substance: WARFARIN SODIUM
     Indication: PRODUCT USED FOR UNKNOWN INDICATION
     Dosage: 4 MG, QD
     Route: 048
     Dates: start: 20170804, end: 20171120
  2. WARFARIN SODIUM. [Interacting]
     Active Substance: WARFARIN SODIUM
     Indication: PRODUCT USED FOR UNKNOWN INDICATION
     Dosage: 4 MG, QD
     Route: 048
     Dates: start: 201712
  3. TEMESTA                            /00273201/ [Concomitant]
     Active Substance: LORAZEPAM
     Indication: PRODUCT USED FOR UNKNOWN INDICATION
     Dosage: 2.5 MG, DAILY
     Route: 048
  4. DIFFU-K [Concomitant]
     Active Substance: POTASSIUM CHLORIDE
     Indication: PRODUCT USED FOR UNKNOWN INDICATION
     Dosage: 600 MG, DAILY
     Route: 065
  5. ATORVASTATINE                      /01326101/ [Concomitant]
     Active Substance: ATORVASTATIN
     Indication: DYSLIPIDAEMIA
     Dosage: 10 MG, QD
     Route: 048
     Dates: start: 20170807
  6. GENTAMYCIN                         /00047101/ [Interacting]
     Active Substance: GENTAMICIN
     Indication: ENDOCARDITIS
     Route: 065
  7. GENTAMYCIN                         /00047101/ [Interacting]
     Active Substance: GENTAMICIN
     Indication: BLOOD CULTURE POSITIVE
     Dosage: UNK
     Route: 065
     Dates: start: 201711
  8. LERCANIDIPINE [Concomitant]
     Active Substance: LERCANIDIPINE
     Indication: PRODUCT USED FOR UNKNOWN INDICATION
     Dosage: 10 MG, QD
     Route: 048
     Dates: start: 20170807, end: 201711
  9. FUROSEMIDE. [Concomitant]
     Active Substance: FUROSEMIDE
     Indication: POLYURIA
     Dosage: 40 MG, QD
     Route: 048
     Dates: start: 20170807
  10. AMLOR [Concomitant]
     Active Substance: AMLODIPINE BESYLATE
     Indication: HYPERTENSION
     Dosage: 5 MG, DAILY
     Route: 048
     Dates: start: 201711
  11. MOVICOL [Concomitant]
     Active Substance: POLYETHYLENE GLYCOL 3350\POTASSIUM CHLORIDE\SODIUM BICARBONATE\SODIUM CHLORIDE
     Indication: PRODUCT USED FOR UNKNOWN INDICATION
     Dosage: 1 OTHER, DAILY
     Route: 048
     Dates: start: 201711

REACTIONS (12)
  - Cerebral disorder [Recovering/Resolving]
  - Anaemia [Recovered/Resolved]
  - Overdose [Recovered/Resolved]
  - Oral candidiasis [Recovered/Resolved]
  - Skin lesion [Recovering/Resolving]
  - Pneumococcal sepsis [Unknown]
  - Drug interaction [Recovered/Resolved]
  - Endocarditis [Recovered/Resolved]
  - Prerenal failure [Recovered/Resolved]
  - Cell death [Recovered/Resolved]
  - Cholestasis [Recovered/Resolved]
  - Chronic sinusitis [Unknown]

NARRATIVE: CASE EVENT DATE: 20171030
